FAERS Safety Report 16770942 (Version 3)
Quarter: 2019Q4

REPORT INFORMATION
  Report Type: Report from Study
  Country: US (occurrence: US)
  Receive Date: 20190904
  Receipt Date: 20191214
  Transmission Date: 20200122
  Serious: No
  Sender: FDA-Public Use
  Company Number: PHEH2019US036636

PATIENT
  Age: 47 Year
  Sex: Female

DRUGS (1)
  1. GILENYA [Suspect]
     Active Substance: FINGOLIMOD HYDROCHLORIDE
     Indication: MULTIPLE SCLEROSIS
     Dosage: 0.5 MG, QD
     Route: 048
     Dates: start: 20190830

REACTIONS (8)
  - Dizziness [Unknown]
  - Vision blurred [Recovered/Resolved]
  - Headache [Recovered/Resolved]
  - Skin texture abnormal [Unknown]
  - Product dose omission [Unknown]
  - Pruritus [Recovered/Resolved]
  - Taste disorder [Recovered/Resolved]
  - Musculoskeletal stiffness [Recovered/Resolved]

NARRATIVE: CASE EVENT DATE: 20190830
